FAERS Safety Report 9525731 (Version 1)
Quarter: 2013Q1

REPORT INFORMATION
  Report Type: Spontaneous
  Country: US (occurrence: None)
  Receive Date: 20130314
  Receipt Date: 20130314
  Transmission Date: 20140127
  Serious: Yes (Other)
  Sender: FDA-Public Use
  Company Number: 1302US002504

PATIENT
  Age: 54 Year
  Sex: Male
  Weight: 90.7 kg

DRUGS (8)
  1. VICTRELIS [Suspect]
     Dosage: TAKE 4 CAPSULES BY MOUTH EVERY 8 HOURS WITH FOOD , 200 MG Q8H, ORAL
     Route: 048
  2. RIBAVIRIN [Suspect]
  3. PEGASYS [Suspect]
     Dosage: PROCLICK
  4. PROTONIX (PANTOPRAZOLE SODIUM) [Concomitant]
  5. PAXIL (PAROXETINE HYDROCHLORIDE) [Concomitant]
  6. METHADONE HYDROCHLORIDE (METHADONE HYDROCHLORIDE) [Concomitant]
  7. ASPIRIN (ASPIRIN) [Concomitant]
  8. OMEGA-3 MARINE TRIGLYCERIDES) [Concomitant]

REACTIONS (2)
  - White blood cell count decreased [None]
  - Red blood cell count decreased [None]
